FAERS Safety Report 13561987 (Version 6)
Quarter: 2018Q3

REPORT INFORMATION
  Report Type: Report from Study
  Country: None (occurrence: US)
  Receive Date: 20170518
  Receipt Date: 20180929
  Transmission Date: 20181010
  Serious: Yes (Other)
  Sender: FDA-Public Use
  Company Number: US-ABBVIE-17K-163-1979907-00

PATIENT
  Age: 65 Year
  Sex: Female

DRUGS (4)
  1. HUMIRA [Suspect]
     Active Substance: ADALIMUMAB
     Route: 058
     Dates: start: 20171214, end: 20180904
  2. HUMATROPE [Concomitant]
     Active Substance: SOMATROPIN
     Indication: HYPOPITUITARISM
     Route: 065
     Dates: start: 20180511, end: 20180726
  3. HUMIRA [Suspect]
     Active Substance: ADALIMUMAB
     Indication: RHEUMATOID ARTHRITIS
     Route: 058
     Dates: end: 201711
  4. NUTROPIN [Concomitant]
     Active Substance: SOMATROPIN
     Indication: PRODUCT USED FOR UNKNOWN INDICATION
     Dosage: 10MG/2ML

REACTIONS (7)
  - Hiatus hernia [Recovering/Resolving]
  - Medical device change [Not Recovered/Not Resolved]
  - Osteoporosis [Recovering/Resolving]
  - Foot deformity [Recovering/Resolving]
  - Cataract [Recovered/Resolved]
  - Post procedural complication [Recovering/Resolving]
  - Visual impairment [Recovered/Resolved]

NARRATIVE: CASE EVENT DATE: 201809
